FAERS Safety Report 18682985 (Version 1)
Quarter: 2020Q4

REPORT INFORMATION
  Report Type: Spontaneous
  Country: US (occurrence: US)
  Receive Date: 20201230
  Receipt Date: 20201230
  Transmission Date: 20210114
  Serious: No
  Sender: FDA-Public Use
  Company Number: US-JNJFOC-20201218248

PATIENT
  Sex: Male
  Weight: 81.72 kg

DRUGS (2)
  1. MENS ROGAINE EXTRA STRENGTH [Suspect]
     Active Substance: MINOXIDIL
     Indication: ALOPECIA
     Route: 061
     Dates: start: 202011, end: 202011
  2. MENS ROGAINE EXTRA STRENGTH [Suspect]
     Active Substance: MINOXIDIL
     Route: 061
     Dates: start: 202011, end: 20201204

REACTIONS (6)
  - Application site exfoliation [Recovered/Resolved]
  - Alopecia [Recovered/Resolved]
  - Application site irritation [Recovered/Resolved]
  - Application site paraesthesia [Recovered/Resolved]
  - Application site pain [Recovered/Resolved]
  - Inappropriate schedule of product administration [Unknown]

NARRATIVE: CASE EVENT DATE: 2020
